FAERS Safety Report 6394490-5 (Version None)
Quarter: 2009Q4

REPORT INFORMATION
  Report Type: 
  Country: None (occurrence: None)
  Receive Date: 20091006
  Receipt Date: 20090922
  Transmission Date: 20100525
  Serious: Yes (Hospitalization)
  Sender: FDA-Public Use
  Company Number: 230812J09USA

PATIENT
  Age: 28 Year
  Sex: Female

DRUGS (8)
  1. REBIF [Suspect]
     Indication: MULTIPLE SCLEROSIS
     Dosage: 44 MCG, 3 IN 1 WEEKS, SUBCUTANEOUS ; 44 MCG, 1 IN 1 WEEKS, SUBCUTANEOUS
     Route: 058
     Dates: start: 20090810, end: 20090901
  2. REBIF [Suspect]
     Indication: MULTIPLE SCLEROSIS
     Dosage: 44 MCG, 3 IN 1 WEEKS, SUBCUTANEOUS ; 44 MCG, 1 IN 1 WEEKS, SUBCUTANEOUS
     Route: 058
     Dates: start: 20090901
  3. KEPPRA [Concomitant]
  4. AMITRIPTYLINE (AMITRIPTYLINE /000002201/) [Concomitant]
  5. AMBIEN [Concomitant]
  6. MAGNESIUM (MAGNESIUM HYDROXIDE) [Concomitant]
  7. VITAMIN B12 [Concomitant]
  8. VITAMIN D [Concomitant]

REACTIONS (4)
  - GASTRITIS [None]
  - OESOPHAGITIS [None]
  - PHARYNGEAL HYPOAESTHESIA [None]
  - SINUSITIS [None]
